FAERS Safety Report 6089613-1 (Version None)
Quarter: 2009Q1

REPORT INFORMATION
  Report Type: 
  Country: None (occurrence: None)
  Receive Date: 20090224
  Receipt Date: 20090215
  Transmission Date: 20090719
  Serious: Yes (Life-Threatening, Hospitalization, Other)
  Sender: FDA-Public Use
  Company Number: US-ABBOTT-08P-163-0452889-00

PATIENT
  Sex: Female

DRUGS (12)
  1. TRICOR [Suspect]
     Indication: DRUG USE FOR UNKNOWN INDICATION
  2. BETASERON [Suspect]
     Indication: MULTIPLE SCLEROSIS
     Dosage: 8 MIU
     Route: 058
     Dates: start: 20001206, end: 20050301
  3. BETASERON [Suspect]
     Dosage: 8 MIU
     Route: 058
     Dates: start: 20071217
  4. LIPITOR [Suspect]
     Indication: DRUG USE FOR UNKNOWN INDICATION
  5. CHEMOTHERAPEUTICS NOS [Concomitant]
     Indication: DRUG USE FOR UNKNOWN INDICATION
     Dates: end: 20020101
  6. BUPROPION HCL [Concomitant]
     Indication: DRUG USE FOR UNKNOWN INDICATION
  7. VENLAFAXINE HCL [Concomitant]
     Indication: DRUG USE FOR UNKNOWN INDICATION
  8. DULOXETINE HYDROCHLORIDE [Concomitant]
     Indication: DRUG USE FOR UNKNOWN INDICATION
  9. MODAFINIL [Concomitant]
     Indication: DRUG USE FOR UNKNOWN INDICATION
  10. TRAZODONE HCL [Concomitant]
     Indication: DRUG USE FOR UNKNOWN INDICATION
  11. CLONAZEPAM [Concomitant]
     Indication: DRUG USE FOR UNKNOWN INDICATION
  12. NATALIZUMAB [Concomitant]
     Indication: DRUG USE FOR UNKNOWN INDICATION

REACTIONS (22)
  - ARTHRITIS [None]
  - ASTHENIA [None]
  - BLINDNESS [None]
  - BLOOD PRESSURE DECREASED [None]
  - CARDIAC ARREST [None]
  - CHOLELITHIASIS [None]
  - CHRONIC OBSTRUCTIVE PULMONARY DISEASE [None]
  - COLLAPSE OF LUNG [None]
  - FALL [None]
  - HYPOPHAGIA [None]
  - INJECTION SITE SCAR [None]
  - INTERVERTEBRAL DISC DEGENERATION [None]
  - JOINT INJURY [None]
  - JOINT RANGE OF MOTION DECREASED [None]
  - JOINT SPRAIN [None]
  - LOWER LIMB FRACTURE [None]
  - MOBILITY DECREASED [None]
  - MUSCULOSKELETAL PAIN [None]
  - OVARIAN CYST [None]
  - TENDON DISORDER [None]
  - TENDONITIS [None]
  - TREMOR [None]
